FAERS Safety Report 5534580-X (Version None)
Quarter: 2007Q4

REPORT INFORMATION
  Report Type: 
  Country: None (occurrence: None)
  Receive Date: 20071204
  Receipt Date: 20071204
  Transmission Date: 20080405
  Serious: Yes (Other)
  Sender: FDA-Public Use
  Company Number: None

PATIENT
  Age: 32 Year
  Sex: Female
  Weight: 49.4421 kg

DRUGS (2)
  1. CHANTIX [Suspect]
     Indication: SMOKING CESSATION THERAPY
     Dosage: 2 TABLETS  AM AND PM  PO  (DURATION: OFF AND ON FOR A YEAR)
     Route: 048
  2. CHANTIX [Suspect]
     Dosage: 2 TABLETS   AM AND PM

REACTIONS (10)
  - ANXIETY [None]
  - CONFUSIONAL STATE [None]
  - HEADACHE [None]
  - HEART RATE INCREASED [None]
  - MAJOR DEPRESSION [None]
  - MYALGIA [None]
  - NIGHTMARE [None]
  - PANIC DISORDER [None]
  - SOCIAL AVOIDANT BEHAVIOUR [None]
  - SUICIDAL IDEATION [None]
